FAERS Safety Report 14773836 (Version 1)
Quarter: 2018Q2

REPORT INFORMATION
  Report Type: Spontaneous
  Country: IT (occurrence: IT)
  Receive Date: 20180418
  Receipt Date: 20180418
  Transmission Date: 20180711
  Serious: Yes (Hospitalization, Other)
  Sender: FDA-Public Use
  Company Number: IT-AMGEN-ITASP2018050037

PATIENT
  Age: 54 Year
  Sex: Male

DRUGS (1)
  1. XGEVA [Suspect]
     Active Substance: DENOSUMAB
     Indication: NON-HODGKIN^S LYMPHOMA
     Dosage: UNK
     Route: 065

REACTIONS (3)
  - Osteonecrosis of jaw [Recovered/Resolved]
  - Tooth abscess [Recovered/Resolved]
  - Off label use [Unknown]
